FAERS Safety Report 7535309-6 (Version None)
Quarter: 2011Q2

REPORT INFORMATION
  Report Type: 
  Country: None (occurrence: None)
  Receive Date: 20110609
  Receipt Date: 20071203
  Transmission Date: 20111010
  Serious: Yes (Death, Other)
  Sender: FDA-Public Use
  Company Number: PHHO2007BE17051

PATIENT
  Sex: Male

DRUGS (12)
  1. REQUIP [Concomitant]
     Dosage: UNK
  2. LUCRIN [Concomitant]
     Dosage: UNK
  3. PROLOPA [Concomitant]
     Dosage: UNK
  4. ZOLEDRONIC ACID [Suspect]
     Indication: METASTASES TO BONE
     Dosage: 4 MG EVERY 4 WEEKS
     Route: 042
     Dates: start: 20031119, end: 20070809
  5. VITAMIN D [Concomitant]
     Dosage: UNK
  6. CASODEX [Concomitant]
     Dosage: UNK
  7. ESTRACYT [Concomitant]
     Dosage: UNK
  8. TRAMADOL HCL [Concomitant]
     Dosage: UNK
  9. ACETAMINOPHEN [Concomitant]
     Dosage: UNK
  10. CALCIUM CARBONATE [Concomitant]
     Dosage: UNK
  11. ANDROCUR [Concomitant]
     Dosage: UNK
  12. ELDEPRYL [Concomitant]
     Dosage: UNK

REACTIONS (13)
  - METASTASES TO PERITONEUM [None]
  - GENERAL PHYSICAL HEALTH DETERIORATION [None]
  - PROSTATIC SPECIFIC ANTIGEN ABNORMAL [None]
  - CHEST PAIN [None]
  - GAIT DISTURBANCE [None]
  - RENAL CYST [None]
  - ARTERIOSCLEROSIS [None]
  - BENIGN PROSTATIC HYPERPLASIA [None]
  - BALANCE DISORDER [None]
  - LYMPHADENOPATHY [None]
  - PAIN [None]
  - DISEASE PROGRESSION [None]
  - DECREASED APPETITE [None]
